FAERS Safety Report 25399484 (Version 2)
Quarter: 2025Q3

REPORT INFORMATION
  Report Type: Spontaneous
  Country: EU (occurrence: EU)
  Receive Date: 20250605
  Receipt Date: 20250725
  Transmission Date: 20251021
  Serious: Yes (Other)
  Sender: TEVA
  Company Number: EU-TEVA-VS-3332473

PATIENT
  Age: 76 Year
  Sex: Female

DRUGS (7)
  1. ROSUVASTATIN [Suspect]
     Active Substance: ROSUVASTATIN
     Indication: Blood cholesterol increased
     Dosage: 5/20 MG, 1X DAILY IN THE EVENING
     Route: 065
     Dates: start: 202410, end: 20250430
  2. ROSUVASTATIN [Suspect]
     Active Substance: ROSUVASTATIN
     Indication: Blood cholesterol increased
     Dosage: ONLY BEEN TAKING 10MG, THAT IS HALF A TABLET OF ROSUVASTATIN-RATIOPHARM 20 MG FILMTABLETTEN, FOR ...
     Route: 048
     Dates: start: 202505
  3. ROSUVASTATIN [Suspect]
     Active Substance: ROSUVASTATIN
     Indication: Blood cholesterol increased
     Dosage: 20 MG DAILY SINCE THE END OF 2020
     Route: 048
     Dates: start: 2020, end: 2020
  4. ROSUVASTATIN [Suspect]
     Active Substance: ROSUVASTATIN
     Indication: Blood cholesterol increased
     Dosage: 1.5 TABLETS DAILY IN THE EVENING, 30 MG DAILY FOR SEVERAL MONTHS
     Route: 048
     Dates: start: 2020, end: 202504
  5. VITAMIN D3 [Concomitant]
     Active Substance: CHOLECALCIFEROL
     Indication: Product used for unknown indication
  6. VITAMIN B12 [Concomitant]
     Active Substance: CYANOCOBALAMIN
     Indication: Product used for unknown indication
  7. BISOPROLOL FUMARATE [Concomitant]
     Active Substance: BISOPROLOL FUMARATE
     Indication: Product used for unknown indication
     Route: 065
     Dates: start: 202505

REACTIONS (5)
  - Drug abuse [Unknown]
  - Pain in extremity [Unknown]
  - Myalgia [Unknown]
  - Fatigue [Unknown]
  - Rheumatic disorder [Unknown]
